FAERS Safety Report 7391392-2 (Version None)
Quarter: 2011Q1

REPORT INFORMATION
  Report Type: 
  Country: None (occurrence: None)
  Receive Date: 20110324
  Receipt Date: 20110311
  Transmission Date: 20110831
  Serious: Yes (Hospitalization)
  Sender: FDA-Public Use
  Company Number: 1000019320

PATIENT
  Age: 80 Year
  Sex: Female

DRUGS (3)
  1. MEMANTINE [Suspect]
     Dates: start: 20101201
  2. PREVISCAN (FLUINDIONE) [Suspect]
  3. ARICEPT [Concomitant]

REACTIONS (4)
  - URINARY INCONTINENCE [None]
  - SPINAL EPIDURAL HAEMORRHAGE [None]
  - DRUG INTERACTION [None]
  - PARAPLEGIA [None]
